FAERS Safety Report 19628358 (Version 7)
Quarter: 2021Q4

REPORT INFORMATION
  Report Type: Report from Study
  Country: US (occurrence: US)
  Receive Date: 20210729
  Receipt Date: 20211225
  Transmission Date: 20220303
  Serious: Yes (Other)
  Sender: FDA-Public Use
  Company Number: NVSC2021US152477

PATIENT
  Age: 86 Year
  Sex: Male

DRUGS (2)
  1. BEOVU [Suspect]
     Active Substance: BROLUCIZUMAB-DBLL
     Indication: Neovascular age-related macular degeneration
     Dosage: UNK
     Route: 047
  2. BEOVU [Suspect]
     Active Substance: BROLUCIZUMAB-DBLL
     Dosage: UNK UNK, QMO
     Route: 047
     Dates: start: 20210706

REACTIONS (5)
  - Retinal haemorrhage [Unknown]
  - Visual impairment [Unknown]
  - Eye irritation [Unknown]
  - Vitreous floaters [Unknown]
  - Hypoaesthesia eye [Unknown]

NARRATIVE: CASE EVENT DATE: 20210706
